FAERS Safety Report 12916336 (Version 1)
Quarter: 2016Q4

REPORT INFORMATION
  Report Type: Spontaneous
  Country: US (occurrence: US)
  Receive Date: 20161103
  Receipt Date: 20161103
  Transmission Date: 20170207
  Serious: Yes (Life-Threatening, Disabling, Other)
  Sender: FDA-Public Use
  Company Number: None

PATIENT
  Age: 73 Year
  Sex: Female
  Weight: 61.2 kg

DRUGS (12)
  1. ASPIRIN. [Concomitant]
     Active Substance: ASPIRIN
  2. TROSPIUM CL [Suspect]
     Active Substance: TROSPIUM CHLORIDE
     Indication: HYPERTONIC BLADDER
     Dosage: ?          QUANTITY:1 TABLET(S);?
     Route: 048
     Dates: start: 20161031, end: 20161101
  3. VITAMIN D [Concomitant]
     Active Substance: CHOLECALCIFEROL
  4. CENTRUM SILVER [Concomitant]
     Active Substance: MINERALS\VITAMINS
  5. DIAZEPAM. [Concomitant]
     Active Substance: DIAZEPAM
  6. ADVAIR HFA [Concomitant]
     Active Substance: FLUTICASONE PROPIONATE\SALMETEROL XINAFOATE
  7. SPIRIVA [Concomitant]
     Active Substance: TIOTROPIUM BROMIDE MONOHYDRATE
  8. OXYCODONE [Concomitant]
     Active Substance: OXYCODONE
  9. LAXATIVE [Concomitant]
     Active Substance: UNSPECIFIED INGREDIENT
  10. VENTOLIN [Concomitant]
     Active Substance: ALBUTEROL SULFATE
  11. OMEPRAZOLE. [Concomitant]
     Active Substance: OMEPRAZOLE
  12. AZITHROMYCIN ANHYDROUS. [Concomitant]
     Active Substance: AZITHROMYCIN ANHYDROUS

REACTIONS (6)
  - Constipation [None]
  - Flatulence [None]
  - Pollakiuria [None]
  - Dyspnoea [None]
  - Abdominal pain [None]
  - Dehydration [None]

NARRATIVE: CASE EVENT DATE: 20161031
